FAERS Safety Report 10348384 (Version 1)
Quarter: 2014Q3

REPORT INFORMATION
  Report Type: Spontaneous
  Country: US (occurrence: US)
  Receive Date: 20140729
  Receipt Date: 20140729
  Transmission Date: 20150326
  Serious: No
  Sender: FDA-Public Use
  Company Number: US-009507513-1407USA011862

PATIENT
  Weight: 79.5 kg

DRUGS (1)
  1. NEXPLANON [Suspect]
     Active Substance: ETONOGESTREL
     Dosage: UNK
     Route: 059
     Dates: start: 20140718

REACTIONS (3)
  - No adverse event [Unknown]
  - Product quality issue [Unknown]
  - Device deployment issue [Unknown]

NARRATIVE: CASE EVENT DATE: 20140718
